FAERS Safety Report 23058572 (Version 1)
Quarter: 2023Q4

REPORT INFORMATION
  Report Type: Report from Study
  Country: US (occurrence: US)
  Receive Date: 20231012
  Receipt Date: 20231012
  Transmission Date: 20240110
  Serious: Yes (Other)
  Sender: FDA-Public Use
  Company Number: US-MYLANLABS-2023M1107194

PATIENT
  Age: 29 Year
  Sex: Female

DRUGS (2)
  1. TOBI [Suspect]
     Active Substance: TOBRAMYCIN
     Indication: Cystic fibrosis
     Dosage: UNK
     Route: 065
     Dates: end: 20230927
  2. AZTREONAM LYSINE [Suspect]
     Active Substance: AZTREONAM LYSINE
     Indication: Cystic fibrosis
     Dosage: 75 MILLIGRAM Q8H (ALTERA NEBULIZER Q8H FOR 28 DAYS THEN 28 DAYS OFF, REPEAT CYCLE AS DIRECTED)
     Route: 055
     Dates: start: 2020

REACTIONS (2)
  - Cystic fibrosis [Unknown]
  - Haemoptysis [Unknown]

NARRATIVE: CASE EVENT DATE: 20230918
